FAERS Safety Report 19438619 (Version 9)
Quarter: 2022Q1

REPORT INFORMATION
  Report Type: Report from Study
  Country: US (occurrence: US)
  Receive Date: 20210619
  Receipt Date: 20220129
  Transmission Date: 20220423
  Serious: Yes (Other)
  Sender: FDA-Public Use
  Company Number: NVSC2021US128434

PATIENT
  Age: 58 Year
  Sex: Female

DRUGS (4)
  1. ENTRESTO [Suspect]
     Active Substance: SACUBITRIL\VALSARTAN
     Indication: Cardiac failure
     Dosage: 1 DOSAGE FORM, BID
     Route: 048
     Dates: start: 202104
  2. FUROSEMIDE [Suspect]
     Active Substance: FUROSEMIDE
     Indication: Weight increased
     Dosage: 20 MG, PRN
     Route: 048
     Dates: start: 20211208
  3. FUROSEMIDE [Suspect]
     Active Substance: FUROSEMIDE
     Indication: Fluid retention
  4. TOPROL XL [Concomitant]
     Active Substance: METOPROLOL SUCCINATE
     Indication: Cardiac failure
     Dosage: 24 MG
     Route: 048
     Dates: start: 20211208

REACTIONS (7)
  - Ejection fraction decreased [Recovering/Resolving]
  - Cardiac failure [Recovering/Resolving]
  - Haemorrhage [Unknown]
  - Chest pain [Not Recovered/Not Resolved]
  - Palpitations [Not Recovered/Not Resolved]
  - Dyspnoea exertional [Not Recovered/Not Resolved]
  - Decreased activity [Unknown]

NARRATIVE: CASE EVENT DATE: 20210413
